FAERS Safety Report 15401798 (Version 6)
Quarter: 2023Q1

REPORT INFORMATION
  Report Type: Spontaneous
  Country: US (occurrence: US)
  Receive Date: 20180919
  Receipt Date: 20230228
  Transmission Date: 20230418
  Serious: Yes (Other)
  Sender: FDA-Public Use
  Company Number: US-PFIZER INC-2018376843

PATIENT
  Age: 72 Year
  Sex: Female

DRUGS (2)
  1. XELJANZ XR [Suspect]
     Active Substance: TOFACITINIB CITRATE
     Indication: Rheumatoid arthritis
     Dosage: 11 MG, 1X/DAY
     Route: 048
     Dates: start: 202107
  2. XELJANZ XR [Suspect]
     Active Substance: TOFACITINIB CITRATE
     Dosage: 11 MG, 1X/DAY
     Route: 048
     Dates: start: 20220204

REACTIONS (16)
  - Mental impairment [Unknown]
  - Pain [Unknown]
  - Memory impairment [Unknown]
  - Illness [Unknown]
  - Blood cholesterol increased [Unknown]
  - Alopecia [Unknown]
  - Abnormal loss of weight [Unknown]
  - Decreased appetite [Unknown]
  - Peripheral swelling [Unknown]
  - Discouragement [Unknown]
  - Depression [Unknown]
  - Feeling abnormal [Unknown]
  - Speech disorder [Unknown]
  - Influenza [Recovered/Resolved]
  - Gait disturbance [Unknown]
  - Product dose omission issue [Unknown]
